FAERS Safety Report 13115113 (Version 1)
Quarter: 2017Q1

REPORT INFORMATION
  Report Type: Spontaneous
  Country: CN (occurrence: CN)
  Receive Date: 20170113
  Receipt Date: 20170113
  Transmission Date: 20170428
  Serious: Yes (Other)
  Sender: FDA-Public Use
  Company Number: CN-PFIZER INC-2017014387

PATIENT
  Age: 43 Year
  Sex: Male
  Weight: 70 kg

DRUGS (4)
  1. NORMAL SALINE [Concomitant]
     Active Substance: SODIUM CHLORIDE
     Dosage: 0.9 % 20 ML, UNK
  2. CYTOSAR [Suspect]
     Active Substance: CYTARABINE
     Dosage: 0.18 G, 1X/DAY
     Route: 041
     Dates: start: 20161019, end: 20161025
  3. NORMAL SALINE [Concomitant]
     Active Substance: SODIUM CHLORIDE
     Dosage: 0.9 % 500 ML, UNK
  4. IDARUBICIN HCL [Suspect]
     Active Substance: IDARUBICIN HYDROCHLORIDE
     Indication: CHEMOTHERAPY
     Dosage: 5 MG, 1X/DAY
     Route: 042
     Dates: start: 20161019, end: 20161021

REACTIONS (2)
  - Bone marrow failure [Recovering/Resolving]
  - Agranulocytosis [Recovering/Resolving]

NARRATIVE: CASE EVENT DATE: 20161027
